FAERS Safety Report 11177699 (Version 1)
Quarter: 2015Q2

REPORT INFORMATION
  Report Type: Spontaneous
  Country: US (occurrence: US)
  Receive Date: 20150610
  Receipt Date: 20150610
  Transmission Date: 20150821
  Serious: No
  Sender: FDA-Public Use
  Company Number: US-PFIZER INC-2015194042

PATIENT
  Age: 33 Year
  Sex: Female

DRUGS (5)
  1. ZOMIG [Suspect]
     Active Substance: ZOLMITRIPTAN
     Dosage: UNK
  2. AZITHROMYCIN [Suspect]
     Active Substance: AZITHROMYCIN ANHYDROUS
     Dosage: UNK
  3. PEPCID [Suspect]
     Active Substance: FAMOTIDINE
     Dosage: UNK
  4. INDERAL [Suspect]
     Active Substance: PROPRANOLOL HYDROCHLORIDE
     Dosage: UNK
  5. WITCH HAZEL. [Suspect]
     Active Substance: WITCH HAZEL
     Dosage: UNK

REACTIONS (1)
  - Drug hypersensitivity [Unknown]
